FAERS Safety Report 17909627 (Version 4)
Quarter: 2021Q4

REPORT INFORMATION
  Report Type: Report from Study
  Country: DE (occurrence: DE)
  Receive Date: 20200617
  Receipt Date: 20211209
  Transmission Date: 20220303
  Serious: Yes (Other)
  Sender: FDA-Public Use
  Company Number: None

PATIENT
  Sex: Female

DRUGS (6)
  1. COSENTYX [Suspect]
     Active Substance: SECUKINUMAB
     Indication: Axial spondyloarthritis
     Dosage: 150 MG, UNKNOWN
     Route: 065
     Dates: start: 20180807
  2. COSENTYX [Suspect]
     Active Substance: SECUKINUMAB
     Dosage: 300 MG, QMO
     Route: 065
     Dates: end: 20200615
  3. ETORICOXIB [Suspect]
     Active Substance: ETORICOXIB
     Indication: Axial spondyloarthritis
     Dosage: 60 MG
     Route: 065
     Dates: start: 20180701, end: 20190110
  4. IBUPROFEN [Suspect]
     Active Substance: IBUPROFEN
     Indication: Axial spondyloarthritis
     Dosage: 600 MG, QW (1 DAY PER WEEK)
     Route: 065
     Dates: start: 20191014, end: 20200315
  5. METHOTREXATE [Suspect]
     Active Substance: METHOTREXATE
     Indication: Axial spondyloarthritis
     Dosage: 15 MG, QW
     Route: 065
     Dates: start: 20161101, end: 20200615
  6. CIMZIA [Concomitant]
     Active Substance: CERTOLIZUMAB PEGOL
     Indication: Product used for unknown indication
     Dosage: 200 MG
     Route: 065
     Dates: start: 20201001, end: 20210126

REACTIONS (3)
  - Unwanted pregnancy [Recovered/Resolved]
  - Maternal exposure during pregnancy [Unknown]
  - Arthritis [Unknown]

NARRATIVE: CASE EVENT DATE: 20191115
